FAERS Safety Report 22918935 (Version 2)
Quarter: 2025Q1

REPORT INFORMATION
  Report Type: Spontaneous
  Country: GB (occurrence: GB)
  Receive Date: 20230907
  Receipt Date: 20250317
  Transmission Date: 20250409
  Serious: Yes (Other)
  Sender: TEVA
  Company Number: None

PATIENT
  Age: 72 Year
  Sex: Female

DRUGS (8)
  1. ALENDRONIC ACID [Suspect]
     Active Substance: ALENDRONIC ACID
     Indication: Osteoporosis
     Route: 065
     Dates: start: 20230308, end: 20230310
  2. IBANDRONIC ACID [Suspect]
     Active Substance: IBANDRONIC ACID
     Indication: Osteoporosis
     Route: 065
     Dates: start: 20230528
  3. VITAMIN D [Concomitant]
     Active Substance: VITAMIN D NOS
     Indication: Pemphigoid
  4. APIXABAN [Concomitant]
     Active Substance: APIXABAN
     Indication: Pulmonary embolism
  5. DOXYCYCLINE [Concomitant]
     Active Substance: DOXYCYCLINE
     Indication: Pemphigoid
  6. CALCIUM [Concomitant]
     Active Substance: CALCIUM
     Indication: Pemphigoid
  7. PREDNISOLONE [Concomitant]
     Active Substance: PREDNISOLONE
     Indication: Pemphigoid
  8. ATORVASTATIN [Concomitant]
     Active Substance: ATORVASTATIN
     Indication: Pulmonary embolism

REACTIONS (3)
  - Depressed mood [Unknown]
  - Suicidal ideation [Unknown]
  - Crying [Unknown]
